FAERS Safety Report 10547593 (Version 5)
Quarter: 2014Q4

REPORT INFORMATION
  Report Type: Spontaneous
  Country: US (occurrence: US)
  Receive Date: 20141028
  Receipt Date: 20141120
  Transmission Date: 20150529
  Serious: Yes (Other)
  Sender: FDA-Public Use
  Company Number: US-UNITED THERAPEUTICS-UNT-2014-007911

PATIENT
  Age: 44 Year
  Sex: Male
  Weight: 61.22 kg

DRUGS (8)
  1. ORENITRAM [Suspect]
     Active Substance: TREPROSTINIL
     Indication: PULMONARY HYPERTENSION
     Dosage: 1.5 MG, TID
     Route: 048
     Dates: start: 20140827
  2. ORENITRAM [Suspect]
     Active Substance: TREPROSTINIL
     Indication: COR PULMONALE CHRONIC
     Dosage: 0.75 MG, TID
     Route: 048
     Dates: start: 20120817
  3. OPSUMIT [Concomitant]
     Active Substance: MACITENTAN
     Indication: PRODUCT USED FOR UNKNOWN INDICATION
  4. ORENITRAM [Suspect]
     Active Substance: TREPROSTINIL
     Indication: PULMONARY ARTERIAL HYPERTENSION
     Dosage: 1.5 MG, TID
     Route: 048
     Dates: start: 20140827
  5. ORENITRAM [Suspect]
     Active Substance: TREPROSTINIL
     Dosage: 1.875 MG, Q8H
     Route: 048
     Dates: start: 20140827
  6. ADCIRCA [Concomitant]
     Active Substance: TADALAFIL
     Indication: PRODUCT USED FOR UNKNOWN INDICATION
  7. ORENITRAM [Suspect]
     Active Substance: TREPROSTINIL
     Indication: HEART DISEASE CONGENITAL
     Dosage: 1.5 MG, TID
     Route: 048
     Dates: start: 20140827
  8. ORENITRAM [Suspect]
     Active Substance: TREPROSTINIL
     Dosage: 1.875 MG, TID
     Route: 048
     Dates: start: 20140827

REACTIONS (13)
  - Therapy cessation [Unknown]
  - Diarrhoea [Unknown]
  - Haemoglobin increased [Unknown]
  - Oedema [Unknown]
  - Vision blurred [Unknown]
  - Oxygen saturation decreased [Unknown]
  - Headache [Unknown]
  - Abdominal distension [Unknown]
  - Malaise [Unknown]
  - Drug ineffective [Unknown]
  - Oedema peripheral [Unknown]
  - Nausea [Unknown]
  - Faecal incontinence [Unknown]

NARRATIVE: CASE EVENT DATE: 2014
